FAERS Safety Report 20554524 (Version 2)
Quarter: 2022Q1

REPORT INFORMATION
  Report Type: Spontaneous
  Country: GR (occurrence: GR)
  Receive Date: 20220304
  Receipt Date: 20220329
  Transmission Date: 20220423
  Serious: Yes (Other)
  Sender: FDA-Public Use
  Company Number: GR-ALXN-A202202917

PATIENT
  Age: 6 Year
  Sex: Female
  Weight: 17 kg

DRUGS (5)
  1. SOLIRIS [Suspect]
     Active Substance: ECULIZUMAB
     Dosage: 300 MG, Q2W
     Route: 042
  2. SOLIRIS [Suspect]
     Active Substance: ECULIZUMAB
     Dosage: 300 MG, UNK
     Route: 042
  3. SOLIRIS [Suspect]
     Active Substance: ECULIZUMAB
     Indication: Atypical haemolytic uraemic syndrome
     Dosage: 600 MG, UNK
     Route: 042
     Dates: start: 20201008
  4. AMLODIPIN                          /00972401/ [Concomitant]
     Indication: Hypertension
     Dosage: 7.5 MG, BID
     Route: 065
     Dates: start: 202010, end: 202106
  5. LISINOPRIL [Concomitant]
     Active Substance: LISINOPRIL
     Indication: Proteinuria
     Dosage: 5 MG, QD
     Route: 065
     Dates: start: 202011

REACTIONS (2)
  - Atypical haemolytic uraemic syndrome [Recovered/Resolved]
  - Condition aggravated [Recovered/Resolved]

NARRATIVE: CASE EVENT DATE: 20210309
